FAERS Safety Report 21909246 (Version 1)
Quarter: 2023Q1

REPORT INFORMATION
  Report Type: Spontaneous
  Country: JP (occurrence: JP)
  Receive Date: 20230125
  Receipt Date: 20230125
  Transmission Date: 20230418
  Serious: Yes (Death, Other)
  Sender: FDA-Public Use
  Company Number: JP-BRISTOL-MYERS SQUIBB COMPANY-2023-011654

PATIENT
  Age: 64 Year
  Sex: Male

DRUGS (9)
  1. YERVOY [Suspect]
     Active Substance: IPILIMUMAB
     Indication: Malignant melanoma of sites other than skin
     Dates: start: 201811
  2. YERVOY [Suspect]
     Active Substance: IPILIMUMAB
     Dates: start: 201812
  3. YERVOY [Suspect]
     Active Substance: IPILIMUMAB
     Dates: start: 201901
  4. OPDIVO [Suspect]
     Active Substance: NIVOLUMAB
     Indication: Malignant melanoma of sites other than skin
     Dates: start: 201811
  5. OPDIVO [Suspect]
     Active Substance: NIVOLUMAB
     Dates: start: 201812
  6. OPDIVO [Suspect]
     Active Substance: NIVOLUMAB
     Dates: start: 201901
  7. OPDIVO [Suspect]
     Active Substance: NIVOLUMAB
     Dates: start: 201902, end: 2020
  8. OPDIVO [Suspect]
     Active Substance: NIVOLUMAB
     Dates: start: 202006, end: 202103
  9. OPDIVO [Suspect]
     Active Substance: NIVOLUMAB

REACTIONS (1)
  - Death [Fatal]
